FAERS Safety Report 4813417-8 (Version None)
Quarter: 2005Q4

REPORT INFORMATION
  Report Type: 
  Country: None (occurrence: None)
  Receive Date: 20051026
  Receipt Date: 20051006
  Transmission Date: 20060501
  Serious: Yes (Hospitalization, Other)
  Sender: FDA-Public Use
  Company Number: USA0510110222

PATIENT
  Age: 74 Year
  Sex: Female

DRUGS (6)
  1. HUMALOG [Suspect]
     Indication: DIABETES MELLITUS INADEQUATE CONTROL
     Dates: start: 19990101
  2. LEVOXYL [Concomitant]
  3. MACROBID [Concomitant]
  4. ARICEPT [Concomitant]
  5. XANAX [Concomitant]
  6. LANTUS [Concomitant]

REACTIONS (6)
  - BALANCE DISORDER [None]
  - DEMENTIA ALZHEIMER'S TYPE [None]
  - DIFFICULTY IN WALKING [None]
  - FALL [None]
  - HIP FRACTURE [None]
  - PHARMACEUTICAL PRODUCT COMPLAINT [None]
